FAERS Safety Report 4508198-1 (Version None)
Quarter: 2004Q4

REPORT INFORMATION
  Report Type: 
  Country: None (occurrence: None)
  Receive Date: 20041123
  Receipt Date: 20031111
  Transmission Date: 20050328
  Serious: No
  Sender: FDA-Public Use
  Company Number: US-GLAXOSMITHKLINE-A0439275A

PATIENT
  Age: 60 Year
  Sex: Male

DRUGS (10)
  1. WELLBUTRIN [Suspect]
     Indication: DEPRESSION
     Dosage: 150MG TWICE PER DAY
     Route: 048
     Dates: start: 20031022
  2. CEPHALEXIN [Concomitant]
  3. PROTONIX [Concomitant]
  4. LISINOPRIL [Concomitant]
  5. FUROSEMIDE [Concomitant]
  6. AMIODARONE [Concomitant]
  7. ALLOPURINOL [Concomitant]
  8. PRAVACHOL [Concomitant]
  9. COREG [Concomitant]
  10. DIGOXIN [Concomitant]

REACTIONS (1)
  - NAUSEA [None]
